FAERS Safety Report 16458954 (Version 1)
Quarter: 2019Q2

REPORT INFORMATION
  Report Type: Spontaneous
  Country: US (occurrence: US)
  Receive Date: 20190620
  Receipt Date: 20190620
  Transmission Date: 20190711
  Serious: No
  Sender: FDA-Public Use
  Company Number: US-THERAPEUTICSMD-2019TMD00907

PATIENT
  Sex: Female

DRUGS (3)
  1. IMVEXXY [Suspect]
     Active Substance: ESTRADIOL
     Dosage: UNK
  2. HIPREX [Suspect]
     Active Substance: METHENAMINE HIPPURATE
     Indication: URINARY TRACT INFECTION
     Dosage: UNK
  3. ESTRADIOL TRANSDERMAL SYSTEM [Concomitant]
     Active Substance: ESTRADIOL

REACTIONS (3)
  - Migraine with aura [Unknown]
  - Vomiting [Unknown]
  - Urinary tract infection [Unknown]

NARRATIVE: CASE EVENT DATE: 20190503
